FAERS Safety Report 11249728 (Version 1)
Quarter: 2015Q3

REPORT INFORMATION
  Report Type: Spontaneous
  Country: US (occurrence: US)
  Receive Date: 20150708
  Receipt Date: 20150708
  Transmission Date: 20151125
  Serious: Yes (Hospitalization, Other)
  Sender: FDA-Public Use
  Company Number: US-ELI_LILLY_AND_COMPANY-US200909004757

PATIENT
  Age: 66 Year
  Sex: Female

DRUGS (2)
  1. GEMZAR [Suspect]
     Active Substance: GEMCITABINE HYDROCHLORIDE
     Indication: PANCREATIC CARCINOMA
     Dosage: UNK, WEEKLY (1/W)
     Route: 042
     Dates: start: 2009
  2. INSULIN [Concomitant]
     Active Substance: INSULIN NOS

REACTIONS (9)
  - Pyrexia [Recovered/Resolved]
  - Infection [Recovered/Resolved]
  - Haematocrit decreased [Unknown]
  - Platelet count increased [Unknown]
  - Red blood cell count decreased [Recovering/Resolving]
  - Red cell distribution width increased [Unknown]
  - Rash [Recovered/Resolved]
  - Blood glucose increased [Recovered/Resolved]
  - Haemoglobin decreased [Unknown]

NARRATIVE: CASE EVENT DATE: 2009
